FAERS Safety Report 25235422 (Version 2)
Quarter: 2025Q2

REPORT INFORMATION
  Report Type: Report from Study
  Country: US (occurrence: US)
  Receive Date: 20250424
  Receipt Date: 20250609
  Transmission Date: 20250716
  Serious: Yes (Other)
  Sender: EMD SERONO INC
  Company Number: US-Merck Healthcare KGaA-2025020021

PATIENT
  Age: 54 Year
  Sex: Female

DRUGS (1)
  1. MAVENCLAD [Suspect]
     Active Substance: CLADRIBINE
     Indication: Multiple sclerosis

REACTIONS (4)
  - Pneumonia [Recovered/Resolved]
  - Viral upper respiratory tract infection [Unknown]
  - White blood cell count decreased [Not Recovered/Not Resolved]
  - Bronchitis [Unknown]

NARRATIVE: CASE EVENT DATE: 20250301
